FAERS Safety Report 13065538 (Version 2)
Quarter: 2017Q1

REPORT INFORMATION
  Report Type: Spontaneous
  Country: FR (occurrence: FR)
  Receive Date: 20161227
  Receipt Date: 20170127
  Transmission Date: 20170428
  Serious: Yes (Hospitalization, Other)
  Sender: FDA-Public Use
  Company Number: FR-TAKEDA-2016TUS022469

PATIENT
  Age: 16 Year
  Sex: Male
  Weight: 53 kg

DRUGS (10)
  1. PENTASA [Concomitant]
     Active Substance: MESALAMINE
     Indication: ENTEROCOLITIS HAEMORRHAGIC
     Dosage: 4 G, QD
     Route: 048
     Dates: start: 20140514, end: 20161116
  2. HYDROCORTISONE. [Concomitant]
     Active Substance: HYDROCORTISONE
     Indication: ADRENAL INSUFFICIENCY
     Dosage: 10 MG, QD
     Route: 048
     Dates: start: 20161001
  3. IMUREL                             /00001501/ [Concomitant]
     Active Substance: AZATHIOPRINE SODIUM
     Indication: ENTEROCOLITIS HAEMORRHAGIC
     Dosage: 50 MG, QD
     Route: 048
     Dates: start: 20151001
  4. ENTYVIO [Suspect]
     Active Substance: VEDOLIZUMAB
     Indication: COLITIS
     Dosage: 300 MG, UNK
     Route: 042
     Dates: start: 20160810
  5. IMURAN [Concomitant]
     Active Substance: AZATHIOPRINE
     Indication: COLITIS
  6. NEORAL [Concomitant]
     Active Substance: CYCLOSPORINE
     Indication: ENTEROCOLITIS HAEMORRHAGIC
     Dosage: 250 MG, BID
     Route: 048
     Dates: start: 20150601, end: 20161116
  7. CICLOSPORINE [Concomitant]
     Active Substance: CYCLOSPORINE
     Indication: COLITIS
     Dosage: UNK
  8. IMURAN [Concomitant]
     Active Substance: AZATHIOPRINE
     Indication: COLITIS
     Dosage: UNK
  9. PREDNISOLONE. [Suspect]
     Active Substance: PREDNISOLONE
     Indication: ENTEROCOLITIS HAEMORRHAGIC
     Dosage: 20 MG, QD
     Route: 048
     Dates: start: 20150527, end: 20161001
  10. CICLOSPORINE [Concomitant]
     Active Substance: CYCLOSPORINE
     Indication: COLITIS

REACTIONS (5)
  - Appendicitis [Recovered/Resolved]
  - Hyperthermia [Recovered/Resolved]
  - Pain [Recovered/Resolved]
  - Inflammation [Recovered/Resolved]
  - Off label use [Unknown]

NARRATIVE: CASE EVENT DATE: 20160810
